FAERS Safety Report 18936909 (Version 1)
Quarter: 2021Q1

REPORT INFORMATION
  Report Type: Spontaneous
  Country: US (occurrence: US)
  Receive Date: 20210224
  Receipt Date: 20210224
  Transmission Date: 20210420
  Serious: Yes (Other)
  Sender: FDA-Public Use
  Company Number: US-GLAXOSMITHKLINE-USCH2021008717

PATIENT
  Age: 78 Year
  Sex: Female

DRUGS (1)
  1. EX?LAX REGULAR STRENGTH CHOCOLATED STIMULANT LAXATIVE [Suspect]
     Active Substance: SENNOSIDES
     Indication: CONSTIPATION
     Dosage: UNKNOWN
     Route: 065
     Dates: start: 20210220, end: 20210220

REACTIONS (3)
  - Illness [Recovered/Resolved]
  - Pain [Unknown]
  - Product complaint [Unknown]

NARRATIVE: CASE EVENT DATE: 20210220
